FAERS Safety Report 4501085-4 (Version None)
Quarter: 2004Q4

REPORT INFORMATION
  Report Type: 
  Country: None (occurrence: None)
  Receive Date: 20041115
  Receipt Date: 20041108
  Transmission Date: 20050328
  Serious: Yes (Hospitalization)
  Sender: FDA-Public Use
  Company Number: PHBS2004FR15114

PATIENT
  Age: 40 Year
  Sex: Female

DRUGS (3)
  1. DIHYDROERGOTAMINE MESYLATE [Suspect]
     Indication: HEADACHE
     Dosage: 10 MG/D
     Route: 065
  2. PROPRANOLOL [Concomitant]
     Dosage: 40 MG, QID
     Route: 065
  3. METHYSERGIDE MALEATE [Suspect]
     Indication: HEADACHE
     Dosage: 1.65 MG, TID
     Route: 065

REACTIONS (1)
  - ERGOT POISONING [None]
